FAERS Safety Report 13702103 (Version 1)
Quarter: 2017Q2

REPORT INFORMATION
  Report Type: Spontaneous
  Country: US (occurrence: US)
  Receive Date: 20170629
  Receipt Date: 20170629
  Transmission Date: 20170830
  Serious: No
  Sender: FDA-Public Use
  Company Number: US-JNJFOC-20170126565

PATIENT
  Sex: Female
  Weight: 114.31 kg

DRUGS (2)
  1. NIZORAL [Suspect]
     Active Substance: KETOCONAZOLE
     Indication: RASH
     Dosage: PRIOR TO 2012
     Route: 048
  2. MINOCYCLINE [Suspect]
     Active Substance: MINOCYCLINE\MINOCYCLINE HYDROCHLORIDE
     Indication: RASH
     Dosage: PRIOR TO 2012
     Route: 048

REACTIONS (1)
  - Liver function test abnormal [Recovered/Resolved]
